FAERS Safety Report 8211163-4 (Version None)
Quarter: 2012Q1

REPORT INFORMATION
  Report Type: 
  Country: None (occurrence: None)
  Receive Date: 20120315
  Receipt Date: 20120305
  Transmission Date: 20120608
  Serious: Yes (Other)
  Sender: FDA-Public Use
  Company Number: ES-JNJFOC-20120303676

PATIENT
  Sex: Male
  Weight: 90 kg

DRUGS (3)
  1. RISPERDAL CONSTA [Suspect]
     Route: 030
     Dates: start: 20111101, end: 20111201
  2. RISPERDAL CONSTA [Suspect]
     Route: 030
     Dates: start: 20110401
  3. RISPERDAL CONSTA [Suspect]
     Indication: PSYCHOTIC DISORDER
     Route: 030
     Dates: start: 20110601

REACTIONS (7)
  - ABNORMAL WEIGHT GAIN [None]
  - DAYDREAMING [None]
  - INCREASED APPETITE [None]
  - NERVOUSNESS [None]
  - HYPOKINESIA [None]
  - TREMOR [None]
  - OVERDOSE [None]
